FAERS Safety Report 6493309-1 (Version None)
Quarter: 2009Q4

REPORT INFORMATION
  Report Type: 
  Country: None (occurrence: None)
  Receive Date: 20091214
  Receipt Date: 20091204
  Transmission Date: 20100525
  Serious: Yes (Disabling, Other)
  Sender: FDA-Public Use
  Company Number: CA-ABBOTT-09P-028-0613088-00

PATIENT
  Age: 56 Year
  Sex: Male
  Weight: 63.56 kg

DRUGS (2)
  1. LIPIDIL [Suspect]
     Indication: DRUG USE FOR UNKNOWN INDICATION
  2. AVALIDE [Concomitant]
     Indication: DRUG USE FOR UNKNOWN INDICATION
     Route: 048

REACTIONS (2)
  - ABASIA [None]
  - MUSCULAR WEAKNESS [None]
